FAERS Safety Report 25154218 (Version 1)
Quarter: 2025Q2

REPORT INFORMATION
  Report Type: Spontaneous
  Country: ES (occurrence: ES)
  Receive Date: 20250403
  Receipt Date: 20250403
  Transmission Date: 20250716
  Serious: Yes (Other)
  Sender: TEVA
  Company Number: ES-TEVA-VS-3315405

PATIENT
  Age: 62 Year
  Sex: Male

DRUGS (18)
  1. ACETAMINOPHEN [Suspect]
     Active Substance: ACETAMINOPHEN
     Indication: Abdominal pain
     Route: 065
     Dates: start: 2022
  2. ZICONOTIDE [Suspect]
     Active Substance: ZICONOTIDE
     Indication: Cancer pain
     Route: 037
     Dates: start: 20230120
  3. ZICONOTIDE [Suspect]
     Active Substance: ZICONOTIDE
     Indication: Cancer pain
     Route: 037
     Dates: start: 20230118
  4. BUPIVACAINE [Concomitant]
     Active Substance: BUPIVACAINE
     Indication: Cancer pain
     Route: 065
     Dates: start: 20230118
  5. BUPIVACAINE [Concomitant]
     Active Substance: BUPIVACAINE
     Indication: Cancer pain
     Route: 065
     Dates: start: 20230120
  6. NIVOLUMAB [Suspect]
     Active Substance: NIVOLUMAB
     Indication: Renal cancer
     Route: 065
     Dates: end: 2022
  7. METHADONE [Concomitant]
     Active Substance: METHADONE HYDROCHLORIDE
     Indication: Pain
     Route: 048
  8. SUNITINIB [Suspect]
     Active Substance: SUNITINIB
     Indication: Renal cancer
     Route: 065
     Dates: start: 202107, end: 202111
  9. METAMIZOLE [Suspect]
     Active Substance: METAMIZOLE
     Indication: Abdominal pain
     Route: 065
     Dates: start: 2022
  10. MORPHINE [Suspect]
     Active Substance: MORPHINE
     Indication: Cancer pain
     Dosage: DELAYED RELEASE
     Route: 048
  11. MORPHINE [Suspect]
     Active Substance: MORPHINE
     Indication: Cancer pain
     Route: 048
  12. MORPHINE [Suspect]
     Active Substance: MORPHINE
     Indication: Cancer pain
     Route: 065
     Dates: start: 20230118
  13. MORPHINE [Suspect]
     Active Substance: MORPHINE
     Indication: Cancer pain
     Route: 065
     Dates: start: 20230120
  14. MORPHINE [Suspect]
     Active Substance: MORPHINE
     Indication: Cancer pain
     Route: 058
  15. MORPHINE [Suspect]
     Active Substance: MORPHINE
     Indication: Cancer pain
     Route: 065
  16. MORPHINE [Suspect]
     Active Substance: MORPHINE
     Indication: Cancer pain
     Route: 058
  17. FENTANYL [Suspect]
     Active Substance: FENTANYL
     Indication: Breakthrough pain
     Route: 065
  18. FENTANYL [Suspect]
     Active Substance: FENTANYL
     Indication: Breakthrough pain
     Route: 045

REACTIONS (8)
  - Neuropsychological symptoms [Recovered/Resolved]
  - Diarrhoea [Unknown]
  - Asthenia [Recovered/Resolved]
  - Affect lability [Recovered/Resolved]
  - Personality change [Recovered/Resolved]
  - Drug intolerance [Unknown]
  - Constipation [Recovered/Resolved]
  - Drug ineffective [Unknown]

NARRATIVE: CASE EVENT DATE: 20220101
